FAERS Safety Report 20866303 (Version 3)
Quarter: 2022Q3

REPORT INFORMATION
  Report Type: Report from Study
  Country: US (occurrence: US)
  Receive Date: 20220524
  Receipt Date: 20220811
  Transmission Date: 20221027
  Serious: No
  Sender: FDA-Public Use
  Company Number: US-AMGEN-USASP2022081732

PATIENT
  Age: 47 Year
  Sex: Male
  Weight: 85.714 kg

DRUGS (6)
  1. REPATHA [Suspect]
     Active Substance: EVOLOCUMAB
     Indication: Hypercholesterolaemia
     Dosage: 140 MILLIGRAM, Q2WK
     Route: 058
     Dates: start: 202108
  2. REPATHA [Suspect]
     Active Substance: EVOLOCUMAB
     Indication: Type IIa hyperlipidaemia
  3. ASPIRIN [Concomitant]
     Active Substance: ASPIRIN
     Indication: Hyperlipidaemia
     Dosage: 81 MILLIGRAM, QD
  4. OMEGA 3 [Concomitant]
     Active Substance: CAPSAICIN
     Dosage: 1200 MILLIGRAM, QD
  5. COENZYME Q10 [Concomitant]
     Active Substance: DIETARY SUPPLEMENT\UBIDECARENONE
     Dosage: 30 MILLIGRAM, QD
  6. COVID-19 VACCINE NOS [Concomitant]
     Active Substance: COVID-19 VACCINE NOS
     Dosage: UNK
     Dates: start: 20210817

REACTIONS (3)
  - Injection site hypersensitivity [Recovered/Resolved]
  - Low density lipoprotein decreased [Unknown]
  - Wrong technique in product usage process [Unknown]

NARRATIVE: CASE EVENT DATE: 20220422
